FAERS Safety Report 7371588-6 (Version None)
Quarter: 2011Q1

REPORT INFORMATION
  Report Type: 
  Country: None (occurrence: None)
  Receive Date: 20110324
  Receipt Date: 20110316
  Transmission Date: 20110831
  Serious: Yes (Hospitalization)
  Sender: FDA-Public Use
  Company Number: US-SANOFI-AVENTIS-2011SA016179

PATIENT
  Age: 45 Year
  Sex: Female
  Weight: 113.64 kg

DRUGS (10)
  1. PLAVIX [Suspect]
     Indication: MYOCARDIAL INFARCTION
     Route: 048
     Dates: start: 20100501
  2. ASPIRIN [Concomitant]
  3. WELLBUTRIN [Concomitant]
  4. METOPROLOL [Concomitant]
  5. LISINOPRIL [Concomitant]
  6. LOVAZA [Concomitant]
  7. IBUPROFEN [Concomitant]
  8. LEXAPRO [Concomitant]
  9. PLAVIX [Suspect]
     Route: 048
     Dates: start: 20100501
  10. LIPITOR [Concomitant]

REACTIONS (2)
  - ANGINA PECTORIS [None]
  - IN-STENT CORONARY ARTERY RESTENOSIS [None]
